FAERS Safety Report 10694800 (Version 3)
Quarter: 2015Q1

REPORT INFORMATION
  Report Type: Spontaneous
  Country: US (occurrence: US)
  Receive Date: 20150107
  Receipt Date: 20150218
  Transmission Date: 20150721
  Serious: Yes (Hospitalization)
  Sender: FDA-Public Use
  Company Number: US-UNITED THERAPEUTICS-UNT-2014-012334

PATIENT
  Age: 51 Year
  Sex: Female
  Weight: 68.48 kg

DRUGS (2)
  1. REMODULIN [Suspect]
     Active Substance: TREPROSTINIL
     Indication: PULMONARY HYPERTENSION
     Dosage: 0.046 ?G/KG, CONTINUING
     Route: 058
     Dates: start: 20141208
  2. REMODULIN [Suspect]
     Active Substance: TREPROSTINIL
     Dosage: 0.05 ?G/KG, CONTINUING
     Route: 058
     Dates: start: 20141209

REACTIONS (4)
  - Infusion site oedema [Unknown]
  - Infusion site pain [Unknown]
  - Infusion site erythema [Unknown]
  - Device related infection [Unknown]

NARRATIVE: CASE EVENT DATE: 201412
